FAERS Safety Report 5082399-9 (Version None)
Quarter: 2006Q3

REPORT INFORMATION
  Report Type: 
  Country: None (occurrence: None)
  Receive Date: 20060817
  Receipt Date: 20060815
  Transmission Date: 20061208
  Serious: Yes (Life-Threatening)
  Sender: FDA-Public Use
  Company Number: US-GLAXOSMITHKLINE-A0616726A

PATIENT
  Age: 74 Year
  Sex: Female

DRUGS (4)
  1. VALTREX [Suspect]
     Indication: HERPES VIRUS INFECTION
     Dosage: 1G PER DAY
     Route: 048
     Dates: start: 20060814, end: 20060814
  2. LEVAQUIN [Concomitant]
  3. FLAGYL I.V. [Concomitant]
  4. PREDNISONE [Concomitant]

REACTIONS (1)
  - ATRIAL FIBRILLATION [None]
